FAERS Safety Report 11633791 (Version 2)
Quarter: 2015Q4

REPORT INFORMATION
  Report Type: Other
  Country: GR (occurrence: GR)
  Receive Date: 20151015
  Receipt Date: 20151215
  Transmission Date: 20160304
  Serious: Yes (Hospitalization)
  Sender: FDA-Public Use
  Company Number: GR-COR_00409_2015

PATIENT
  Age: 74 Year
  Sex: Male

DRUGS (6)
  1. 5-FLUOROURACIL [Suspect]
     Active Substance: FLUOROURACIL
     Indication: SQUAMOUS CELL CARCINOMA OF HEAD AND NECK
     Dosage: ONE CYCLE, AS CONTINUOUS 24 HR INFUSION DAYS 1-4
  2. CARBOPLATIN. [Suspect]
     Active Substance: CARBOPLATIN
     Indication: SQUAMOUS CELL CARCINOMA OF HEAD AND NECK
     Dosage: ONE CYCLE, AUC 5
  3. CETUXIMAB [Suspect]
     Active Substance: CETUXIMAB
     Indication: SQUAMOUS CELL CARCINOMA OF HEAD AND NECK
     Dosage: ONE CYCLE, ONE DAY 1
  4. DOCETAXEL. [Suspect]
     Active Substance: DOCETAXEL
     Indication: SQUAMOUS CELL CARCINOMA OF HEAD AND NECK
     Dosage: ONE CYCLE, AS A 1-HR INFUSION ON DAY 1
  5. DEXAMETHASONE. [Concomitant]
     Active Substance: DEXAMETHASONE
     Indication: PROPHYLAXIS
     Dosage: ON DAY 5 OF  CYCLE FOR 10 DAYS
  6. ANTIBIOTICS [Concomitant]
     Active Substance: UNSPECIFIED INGREDIENT
     Indication: PROPHYLAXIS
     Dosage: ON DAY 5 OF  CYCLE FOR 10 DAYS

REACTIONS (3)
  - Thrombophlebitis [Unknown]
  - Thrombosis in device [None]
  - Catheter site phlebitis [None]
